FAERS Safety Report 24194882 (Version 1)
Quarter: 2024Q3

REPORT INFORMATION
  Report Type: Spontaneous
  Country: FR (occurrence: FR)
  Receive Date: 20240809
  Receipt Date: 20240809
  Transmission Date: 20241017
  Serious: Yes (Other)
  Sender: TEVA
  Company Number: None

PATIENT
  Age: 56 Year
  Sex: Female

DRUGS (1)
  1. FLUOROURACIL [Suspect]
     Active Substance: FLUOROURACIL
     Indication: Adenocarcinoma gastric
     Dosage: TIME INTERVAL: TOTAL
     Route: 042
     Dates: start: 20240614

REACTIONS (1)
  - Catheter site pain [Recovered/Resolved]

NARRATIVE: CASE EVENT DATE: 20240614
